FAERS Safety Report 20663126 (Version 1)
Quarter: 2022Q2

REPORT INFORMATION
  Report Type: Other
  Country: CA (occurrence: CA)
  Receive Date: 20220401
  Receipt Date: 20220401
  Transmission Date: 20220720
  Serious: Yes (Life-Threatening, Hospitalization, Other)
  Sender: FDA-Public Use
  Company Number: None

PATIENT
  Age: 11 Year
  Sex: Female
  Weight: 51 kg

DRUGS (3)
  1. METHOTREXATE [Suspect]
     Active Substance: METHOTREXATE
     Indication: Osteosarcoma
     Route: 065
  2. LEUCOVORIN [Concomitant]
     Active Substance: LEUCOVORIN
     Indication: Product used for unknown indication
     Route: 065
  3. LEUCOVORIN [Concomitant]
     Active Substance: LEUCOVORIN

REACTIONS (8)
  - Acute kidney injury [Recovered/Resolved]
  - Toxicity to various agents [Unknown]
  - Continuous haemodiafiltration [Recovered/Resolved]
  - Endotracheal intubation [Recovered/Resolved]
  - Haemodialysis [Recovered/Resolved]
  - Nephropathy toxic [Recovered/Resolved]
  - Hypervolaemia [Recovered/Resolved]
  - Pulmonary oedema [Recovered/Resolved]
